FAERS Safety Report 5086919-X (Version None)
Quarter: 2006Q3

REPORT INFORMATION
  Report Type: 
  Country: None (occurrence: None)
  Receive Date: 20060818
  Receipt Date: 20060808
  Transmission Date: 20061208
  Serious: Yes (Other)
  Sender: FDA-Public Use
  Company Number: 2006087807

PATIENT
  Age: 71 Year
  Sex: Female

DRUGS (5)
  1. NEURONTIN [Suspect]
     Indication: DIABETIC NEUROPATHY
     Dosage: 300 MG (300 MG, 1 IN 1 D), ORAL
     Route: 048
     Dates: start: 20050713
  2. GLUCOPHAGE [Concomitant]
  3. LOPRESSOR [Concomitant]
  4. LORAZEPAM [Concomitant]
  5. CHLORDIAZEPOXIDE W/CLIDINIUM BROMIDE [Concomitant]

REACTIONS (6)
  - ANAPHYLACTOID REACTION [None]
  - ANXIETY [None]
  - NERVOUSNESS [None]
  - NONSPECIFIC REACTION [None]
  - PHARMACEUTICAL PRODUCT COMPLAINT [None]
  - THROAT TIGHTNESS [None]
